FAERS Safety Report 25207028 (Version 1)
Quarter: 2025Q2

REPORT INFORMATION
  Report Type: Spontaneous
  Country: US (occurrence: US)
  Receive Date: 20250417
  Receipt Date: 20250417
  Transmission Date: 20250717
  Serious: No
  Sender: Kenvue
  Company Number: US-KENVUE-20250307068

PATIENT
  Age: 66 Year
  Sex: Female

DRUGS (2)
  1. ZYRTEC [Suspect]
     Active Substance: CETIRIZINE HYDROCHLORIDE
     Indication: Rhinorrhoea
     Dosage: 1 DOSAGE FORM, ONCE A DAY
     Route: 065
     Dates: start: 202503, end: 202503
  2. ZYRTEC [Suspect]
     Active Substance: CETIRIZINE HYDROCHLORIDE
     Indication: Eye pruritus

REACTIONS (2)
  - Adverse event [Recovering/Resolving]
  - Brain fog [Recovering/Resolving]

NARRATIVE: CASE EVENT DATE: 20250310
